FAERS Safety Report 11651786 (Version 1)
Quarter: 2015Q4

REPORT INFORMATION
  Report Type: Spontaneous
  Country: US (occurrence: None)
  Receive Date: 20151021
  Receipt Date: 20151021
  Transmission Date: 20160304
  Serious: No
  Sender: FDA-Public Use
  Company Number: None

PATIENT
  Age: 64 Year
  Sex: Female

DRUGS (4)
  1. PRAVACHOL [Concomitant]
     Active Substance: PRAVASTATIN SODIUM
  2. OLANZAPINE. [Concomitant]
     Active Substance: OLANZAPINE
  3. AFINITOR [Suspect]
     Active Substance: EVEROLIMUS
     Indication: BRAIN NEOPLASM MALIGNANT
     Route: 048
     Dates: start: 20150703, end: 20151005
  4. EXEMESTANE. [Concomitant]
     Active Substance: EXEMESTANE

REACTIONS (2)
  - Pneumonitis [None]
  - Therapy cessation [None]

NARRATIVE: CASE EVENT DATE: 20151005
